FAERS Safety Report 5843138-4 (Version None)
Quarter: 2008Q3

REPORT INFORMATION
  Report Type: 
  Country: None (occurrence: None)
  Receive Date: 20080813
  Receipt Date: 20080211
  Transmission Date: 20090109
  Serious: No
  Sender: FDA-Public Use
  Company Number: US-BAYER-200813920NA

PATIENT
  Sex: Female

DRUGS (1)
  1. CLIMARA PRO [Suspect]
     Indication: HOT FLUSH
     Route: 062

REACTIONS (3)
  - APPLICATION SITE RASH [None]
  - GENITAL HAEMORRHAGE [None]
  - NO ADVERSE EVENT [None]
